FAERS Safety Report 9471819 (Version 1)
Quarter: 2013Q3

REPORT INFORMATION
  Report Type: Spontaneous
  Country: US (occurrence: None)
  Receive Date: 20130819
  Receipt Date: 20130819
  Transmission Date: 20140515
  Serious: Yes (Hospitalization)
  Sender: FDA-Public Use
  Company Number: IPC201308-000319

PATIENT
  Age: 41 Year
  Sex: Female

DRUGS (10)
  1. HYDROXYCHLOROQUINE SULFATE [Suspect]
     Indication: SYSTEMIC LUPUS ERYTHEMATOSUS
     Route: 048
  2. CARVEDILOL (CARVEDILOL) (CARVEDILOL) [Concomitant]
  3. FUROSEMIDE [Concomitant]
  4. NIFEDIPINE EXTENDED RELEASE (NIFEDIPINE) (NIFEDIPINE) [Concomitant]
  5. PREDNISOLONE [Concomitant]
  6. CALCITRIOL (VIT D) (VIT D) [Concomitant]
  7. MYCOHENOLATE ACD (MYCOPHENOLATE ACID) (MYCOHENOLATE ACID) [Concomitant]
  8. MULTIVITAMIN [Concomitant]
  9. FERROUS SULPHATE (FERROUS SULPHATE) (FERROUSE SULPHATE) [Concomitant]
  10. SODIUM BICARBONATE [Concomitant]

REACTIONS (3)
  - Electrocardiogram QT prolonged [None]
  - Cardiac failure congestive [None]
  - Treatment noncompliance [None]
